FAERS Safety Report 5522543-X (Version None)
Quarter: 2007Q4

REPORT INFORMATION
  Report Type: 
  Country: None (occurrence: None)
  Receive Date: 20071120
  Receipt Date: 20071115
  Transmission Date: 20080405
  Serious: Yes (Other)
  Sender: FDA-Public Use
  Company Number: US-ELI_LILLY_AND_COMPANY-US200711001414

PATIENT
  Sex: Female

DRUGS (6)
  1. BYETTA [Suspect]
     Dosage: 5 UG, 2/D
     Route: 058
     Dates: start: 20071001, end: 20071030
  2. ATENOLOL [Concomitant]
     Dosage: 50 G, DAILY (1/D)
  3. HYDROCHLOROTHIAZIDE [Concomitant]
     Dosage: 25 G, DAILY (1/D)
  4. CELEBREX [Concomitant]
     Dosage: 200 G, 2/D
  5. NORVASC [Concomitant]
     Dosage: 5 G, 2/D
  6. PRILOSEC [Concomitant]
     Dosage: 20 G, 2/D

REACTIONS (1)
  - ANAPHYLACTIC SHOCK [None]
